FAERS Safety Report 6619861-0 (Version None)
Quarter: 2010Q1

REPORT INFORMATION
  Report Type: 
  Country: None (occurrence: None)
  Receive Date: 20100304
  Receipt Date: 20100219
  Transmission Date: 20100710
  Serious: Yes (Hospitalization)
  Sender: FDA-Public Use
  Company Number: 230266J10USA

PATIENT
  Age: 31 Year
  Sex: Female
  Weight: 66 kg

DRUGS (2)
  1. REBIF [Suspect]
     Indication: MULTIPLE SCLEROSIS
     Dosage: 44 MCG, 3 IN 1 WEEKS, SUBCUTANEOUS
     Route: 058
     Dates: start: 20091106
  2. IBUPROFEN [Concomitant]

REACTIONS (6)
  - ABSCESS [None]
  - APPENDIX DISORDER [None]
  - INFLAMMATION [None]
  - POST PROCEDURAL COMPLICATION [None]
  - SEROSITIS [None]
  - URINARY RETENTION [None]
